FAERS Safety Report 6707117-7 (Version None)
Quarter: 2010Q2

REPORT INFORMATION
  Report Type: 
  Country: None (occurrence: None)
  Receive Date: 20100503
  Receipt Date: 20100428
  Transmission Date: 20101027
  Serious: Yes (Hospitalization)
  Sender: FDA-Public Use
  Company Number: B0650200A

PATIENT
  Sex: Male

DRUGS (1)
  1. AUGMENTIN '125' [Suspect]
     Indication: COUGH
     Dosage: 125MG SINGLE DOSE
     Route: 048
     Dates: start: 20100417, end: 20100417

REACTIONS (5)
  - PRURITUS [None]
  - RASH GENERALISED [None]
  - RASH MACULO-PAPULAR [None]
  - RESPIRATORY DISORDER [None]
  - SELF-MEDICATION [None]
